FAERS Safety Report 15256966 (Version 1)
Quarter: 2018Q3

REPORT INFORMATION
  Report Type: Spontaneous
  Country: US (occurrence: US)
  Receive Date: 20180808
  Receipt Date: 20180808
  Transmission Date: 20181010
  Serious: Yes (Hospitalization)
  Sender: FDA-Public Use
  Company Number: US-AKRON, INC.-2053475

PATIENT
  Age: 14 Year
  Sex: Female

DRUGS (2)
  1. SULFAMETHOXAZOLE AND TRIMETHOPRIM ORAL SUSPENSION, USP [Concomitant]
     Active Substance: SULFAMETHOXAZOLE\TRIMETHOPRIM
  2. GABAPENTIN. [Suspect]
     Active Substance: GABAPENTIN
     Route: 048

REACTIONS (5)
  - Myoclonus [Recovered/Resolved]
  - Respiratory failure [Recovered/Resolved]
  - Dysarthria [Recovered/Resolved]
  - Lethargy [Recovered/Resolved]
  - Tonic clonic movements [Recovered/Resolved]
